FAERS Safety Report 6443196-2 (Version None)
Quarter: 2009Q4

REPORT INFORMATION
  Report Type: 
  Country: None (occurrence: None)
  Receive Date: 20091117
  Receipt Date: 20091106
  Transmission Date: 20100525
  Serious: Yes (Other)
  Sender: FDA-Public Use
  Company Number: IT-ELI_LILLY_AND_COMPANY-IT200911001518

PATIENT
  Age: 55 Year
  Sex: Male

DRUGS (3)
  1. BYETTA [Suspect]
     Indication: DRUG USE FOR UNKNOWN INDICATION
     Dosage: 10 UG, DAILY (1/D)
     Route: 065
     Dates: start: 20090601, end: 20091105
  2. METFORMIN HCL [Concomitant]
     Dosage: 1000 MG, 2/D
     Route: 065
  3. GLICLAZIDE [Concomitant]
     Dosage: UNK, UNKNOWN
     Route: 066

REACTIONS (4)
  - ABDOMINAL PAIN [None]
  - NAUSEA [None]
  - PANCREATITIS [None]
  - VOMITING [None]
